FAERS Safety Report 10540060 (Version 1)
Quarter: 2014Q4

REPORT INFORMATION
  Report Type: Spontaneous
  Country: US (occurrence: None)
  Receive Date: 20141023
  Receipt Date: 20141023
  Transmission Date: 20150529
  Serious: No
  Sender: FDA-Public Use
  Company Number: None

PATIENT
  Age: 84 Year
  Sex: Male
  Weight: 101.61 kg

DRUGS (18)
  1. LOSARTEN [Concomitant]
     Active Substance: LOSARTAN
  2. SIMVASTATIN. [Concomitant]
     Active Substance: SIMVASTATIN
  3. PIGLITAZONE [Concomitant]
  4. ALLOPORINAL [Concomitant]
  5. VITAMIN D [Concomitant]
     Active Substance: CHOLECALCIFEROL
  6. CREON [Suspect]
     Active Substance: PANCRELIPASE AMYLASE\PANCRELIPASE LIPASE\PANCRELIPASE PROTEASE
     Indication: DIARRHOEA
     Dosage: 6000 UNIT CAPSOL?3 PILLS?2 WITH MEALS + 1 WITH SNACK ?MOUTH?
     Route: 048
     Dates: start: 20140919, end: 20140925
  7. METOPROLOL [Concomitant]
     Active Substance: METOPROLOL
  8. OMNEPRAZOLE [Concomitant]
  9. IMODIUM [Concomitant]
     Active Substance: LOPERAMIDE HYDROCHLORIDE
  10. TERAZOSIN [Concomitant]
     Active Substance: TERAZOSIN\TERAZOSIN HYDROCHLORIDE
  11. 81 ASPIRIN [Concomitant]
  12. TRAMADOL [Concomitant]
     Active Substance: TRAMADOL
  13. LO DOSE ASPIRIN [Concomitant]
  14. AMLODIPINE [Concomitant]
     Active Substance: AMLODIPINE BESYLATE
  15. COLCHAZINE [Concomitant]
  16. CREON [Suspect]
     Active Substance: PANCRELIPASE AMYLASE\PANCRELIPASE LIPASE\PANCRELIPASE PROTEASE
     Indication: PANCREATIC INSUFFICIENCY
     Dosage: 6000 UNIT CAPSOL?3 PILLS?2 WITH MEALS + 1 WITH SNACK ?MOUTH?
     Route: 048
     Dates: start: 20140919, end: 20140925
  17. NYSTATIN. [Concomitant]
     Active Substance: NYSTATIN
  18. HCTZ [Concomitant]
     Active Substance: HYDROCHLOROTHIAZIDE

REACTIONS (4)
  - Abdominal pain upper [None]
  - Vomiting [None]
  - Dizziness [None]
  - Asthenia [None]

NARRATIVE: CASE EVENT DATE: 20140923
